FAERS Safety Report 7057399-X (Version None)
Quarter: 2010Q4

REPORT INFORMATION
  Report Type: 
  Country: None (occurrence: None)
  Receive Date: 20101021
  Receipt Date: 20101021
  Transmission Date: 20110411
  Serious: Yes (Hospitalization)
  Sender: FDA-Public Use
  Company Number: None

PATIENT
  Age: 56 Year
  Sex: Male
  Weight: 68 kg

DRUGS (1)
  1. WARFARIN SODIUM [Suspect]
     Indication: VASCULAR OPERATION
     Dosage: 7.5MG OTHER PO
     Route: 048
     Dates: start: 20100610

REACTIONS (2)
  - INTERNATIONAL NORMALISED RATIO INCREASED [None]
  - OSTEOMYELITIS [None]
